FAERS Safety Report 6267208-4 (Version None)
Quarter: 2009Q3

REPORT INFORMATION
  Report Type: 
  Country: None (occurrence: None)
  Receive Date: 20090714
  Receipt Date: 20090703
  Transmission Date: 20100115
  Serious: Yes (Hospitalization, Other)
  Sender: FDA-Public Use
  Company Number: JP-JNJFOC-20090503480

PATIENT
  Sex: Female
  Weight: 59 kg

DRUGS (11)
  1. REMICADE [Suspect]
     Dosage: 3RD DOSE
     Route: 042
  2. REMICADE [Suspect]
     Dosage: 2ND DOSE
     Route: 042
  3. REMICADE [Suspect]
     Indication: RHEUMATOID ARTHRITIS
     Dosage: 1ST DOSE
     Route: 042
  4. RHEUMATREX [Suspect]
     Indication: RHEUMATOID ARTHRITIS
     Route: 048
  5. PREDNISOLONE [Suspect]
     Indication: RHEUMATOID ARTHRITIS
     Route: 048
  6. CLINORIL [Concomitant]
     Route: 048
  7. MARZULENE [Concomitant]
     Route: 048
  8. MOHRUS TAPE [Concomitant]
  9. CYTOTEC [Concomitant]
     Route: 048
  10. FOLIAMIN [Concomitant]
  11. SELTOUCH [Concomitant]

REACTIONS (1)
  - DISSEMINATED TUBERCULOSIS [None]
